FAERS Safety Report 12289952 (Version 2)
Quarter: 2016Q2

REPORT INFORMATION
  Report Type: Spontaneous
  Country: HR (occurrence: HR)
  Receive Date: 20160421
  Receipt Date: 20160518
  Transmission Date: 20160815
  Serious: Yes (Life-Threatening, Hospitalization)
  Sender: FDA-Public Use
  Company Number: HR-TEVA-652461ACC

PATIENT
  Age: 66 Year
  Sex: Male
  Weight: 81 kg

DRUGS (14)
  1. XELODA [Suspect]
     Active Substance: CAPECITABINE
     Indication: HER-2 POSITIVE GASTRIC CANCER
     Dosage: 4000 MILLIGRAM DAILY; MOST RECENT DOSE: 05-AUG-2014, DOSE REDUCED
     Route: 048
     Dates: start: 20140722
  2. DALTEPARIN [Concomitant]
     Active Substance: DALTEPARIN
     Indication: DEEP VEIN THROMBOSIS
     Route: 058
     Dates: start: 20140624
  3. AMLODIPINE BESILATE/RAMIPRIL [Concomitant]
     Indication: HYPERTENSION
     Route: 048
     Dates: start: 201401
  4. ONDANSETRON [Concomitant]
     Active Substance: ONDANSETRON
     Indication: PROPHYLAXIS OF NAUSEA AND VOMITING
     Route: 042
     Dates: start: 20140722
  5. PERTUZUMAB [Concomitant]
     Active Substance: PERTUZUMAB
     Indication: HER-2 POSITIVE GASTRIC CANCER
     Dosage: LAST DOSE PRIOR TO SAE: 22-JUL-2014
     Route: 042
     Dates: start: 20140722, end: 20140722
  6. APREPITANT. [Concomitant]
     Active Substance: APREPITANT
     Indication: PROPHYLAXIS OF NAUSEA AND VOMITING
     Route: 048
     Dates: start: 20140722, end: 20141007
  7. RANITIDINE. [Concomitant]
     Active Substance: RANITIDINE
     Indication: GASTRITIS PROPHYLAXIS
     Dosage: INDICATION: PREVENTION OF GASTRIC MUCOSAL INJURY
     Route: 042
     Dates: start: 20140722
  8. TRASTUZUMAB [Concomitant]
     Active Substance: TRASTUZUMAB
     Dosage: MAINTANENCE DOSE
     Route: 042
  9. CHLOROPYRAMINE [Concomitant]
     Active Substance: CHLOROPYRAMINE
     Indication: HYPERSENSITIVITY
     Route: 042
     Dates: start: 20140722
  10. ONDANSETRON [Concomitant]
     Active Substance: ONDANSETRON
     Route: 048
     Dates: start: 20140723, end: 20140727
  11. CISPLATIN PLIVA [Suspect]
     Active Substance: CISPLATIN
     Indication: HER-2 POSITIVE GASTRIC CANCER
     Dosage: MOST RECENT DOSE : 22-JUL-2014, DOSE REDUCED
     Route: 042
     Dates: start: 20140722
  12. PANTOPRAZOL [Concomitant]
     Active Substance: PANTOPRAZOLE SODIUM
     Indication: GASTRITIS
     Route: 048
     Dates: start: 20140624
  13. TRASTUZUMAB [Concomitant]
     Active Substance: TRASTUZUMAB
     Indication: HER-2 POSITIVE GASTRIC CANCER
     Dosage: LOADING DOSE: 8MG/KG; LAST DOSE PRIOR TO SAE: 22-JUL-2014
     Route: 042
     Dates: start: 20140722
  14. CHLOROPYRAMINE [Concomitant]
     Active Substance: CHLOROPYRAMINE
     Indication: CHILLS
     Route: 042
     Dates: start: 20140722, end: 20140722

REACTIONS (8)
  - Asthenia [Unknown]
  - Decreased appetite [Unknown]
  - Hypokalaemia [Unknown]
  - Diarrhoea [Unknown]
  - Vomiting [Unknown]
  - Abdominal pain [Unknown]
  - Nausea [Unknown]
  - Ileus paralytic [Recovered/Resolved]

NARRATIVE: CASE EVENT DATE: 20140807
